FAERS Safety Report 6814267-3 (Version None)
Quarter: 2010Q2

REPORT INFORMATION
  Report Type: 
  Country: None (occurrence: None)
  Receive Date: 20100629
  Receipt Date: 20100615
  Transmission Date: 20101027
  Serious: Yes (Other)
  Sender: FDA-Public Use
  Company Number: 2010SP001690

PATIENT
  Age: 6 Month

DRUGS (2)
  1. XOPENEX [Suspect]
     Indication: ASTHMA
     Dosage: INHALATION
  2. ALBUTEROL [Concomitant]

REACTIONS (1)
  - VENTRICULAR TACHYCARDIA [None]
